FAERS Safety Report 24567344 (Version 3)
Quarter: 2025Q1

REPORT INFORMATION
  Report Type: Report from Study
  Country: US (occurrence: US)
  Receive Date: 20241030
  Receipt Date: 20250109
  Transmission Date: 20250408
  Serious: No
  Sender: SUNOVION
  Company Number: US-SMPA-2024SPA004447AA

PATIENT

DRUGS (2)
  1. ORGOVYX [Suspect]
     Active Substance: RELUGOLIX
     Indication: Prostate cancer
     Dosage: 360 MG, SINGLE
     Route: 048
     Dates: start: 20240924, end: 20240924
  2. ORGOVYX [Suspect]
     Active Substance: RELUGOLIX
     Dosage: 120 MG, QD
     Route: 048
     Dates: start: 20240925

REACTIONS (9)
  - Skin abrasion [Unknown]
  - Wound haemorrhage [Unknown]
  - Wound secretion [Unknown]
  - Sleep deficit [Unknown]
  - Nasopharyngitis [Unknown]
  - Nasal congestion [Unknown]
  - Wheezing [Unknown]
  - Fatigue [Unknown]
  - Wrong dose [Unknown]
